FAERS Safety Report 6930611-0 (Version None)
Quarter: 2010Q3

REPORT INFORMATION
  Report Type: 
  Country: None (occurrence: None)
  Receive Date: 20100818
  Receipt Date: 20100813
  Transmission Date: 20110219
  Serious: Yes (Hospitalization)
  Sender: FDA-Public Use
  Company Number: AU-MERCK-1008USA01674

PATIENT
  Sex: Male

DRUGS (5)
  1. CANCIDAS [Suspect]
     Route: 065
  2. CIPROFLOXACIN [Suspect]
     Route: 065
  3. ITRACONAZOLE [Suspect]
     Route: 048
  4. POSACONAZOLE [Suspect]
     Route: 065
  5. VORICONAZOLE [Suspect]
     Route: 048

REACTIONS (4)
  - DRUG INEFFECTIVE [None]
  - HEPATIC ENZYME INCREASED [None]
  - HYPOCALCAEMIA [None]
  - HYPONATRAEMIA [None]
